FAERS Safety Report 17459948 (Version 4)
Quarter: 2020Q1

REPORT INFORMATION
  Report Type: Spontaneous
  Country: US (occurrence: US)
  Receive Date: 20200226
  Receipt Date: 20200317
  Transmission Date: 20200409
  Serious: No
  Sender: FDA-Public Use
  Company Number: US-SA-2020SA046709

PATIENT
  Age: 63 Year
  Sex: Female

DRUGS (2)
  1. LANTUS [Concomitant]
     Active Substance: INSULIN GLARGINE
     Dosage: UNK UNK, HS
  2. PRALUENT [Suspect]
     Active Substance: ALIROCUMAB
     Indication: BLOOD CHOLESTEROL ABNORMAL
     Dosage: 75 MG, QOW
     Dates: start: 202001

REACTIONS (9)
  - Cough [Unknown]
  - Injection site pruritus [Recovered/Resolved]
  - Injection site discolouration [Unknown]
  - Injection site swelling [Recovered/Resolved]
  - Infection [Recovered/Resolved]
  - Injection site bruising [Recovered/Resolved]
  - Wrong technique in device usage process [Recovering/Resolving]
  - Injection site erythema [Unknown]
  - Incorrect dose administered [Unknown]

NARRATIVE: CASE EVENT DATE: 2020
